FAERS Safety Report 14361768 (Version 1)
Quarter: 2018Q1

REPORT INFORMATION
  Report Type: Spontaneous
  Country: FR (occurrence: FR)
  Receive Date: 20180108
  Receipt Date: 20180108
  Transmission Date: 20180509
  Serious: Yes (Hospitalization)
  Sender: FDA-Public Use
  Company Number: FR-SUN PHARMACEUTICAL INDUSTRIES LTD-2017RR-157788

PATIENT
  Age: 74 Year
  Sex: Male

DRUGS (3)
  1. ODRIK 4 MG, G?LULE [Suspect]
     Active Substance: TRANDOLAPRIL
     Indication: HYPERCHOLESTEROLAEMIA
     Dosage: 1 DF, UNK
     Route: 048
  2. BACTRIM [Suspect]
     Active Substance: SULFAMETHOXAZOLE\TRIMETHOPRIM
     Indication: DEVICE RELATED INFECTION
     Dosage: 3 DF, UNK
     Route: 048
     Dates: start: 20170223
  3. ALLOPURINOL. [Suspect]
     Active Substance: ALLOPURINOL
     Indication: GOUT
     Dosage: NON RENSEIGN?E ()
     Route: 048

REACTIONS (3)
  - Acute kidney injury [Recovered/Resolved]
  - Hyperkalaemia [Recovered/Resolved]
  - Labelled drug-disease interaction medication error [Recovered/Resolved]

NARRATIVE: CASE EVENT DATE: 201702
